FAERS Safety Report 12971447 (Version 1)
Quarter: 2016Q4

REPORT INFORMATION
  Report Type: Spontaneous
  Country: US (occurrence: US)
  Receive Date: 20161123
  Receipt Date: 20161123
  Transmission Date: 20170207
  Serious: No
  Sender: FDA-Public Use
  Company Number: US-JAZZ-2016-US-020081

PATIENT
  Sex: Female

DRUGS (12)
  1. XYREM [Suspect]
     Active Substance: SODIUM OXYBATE
     Dosage: DOSE ADJUSTMENTS
     Route: 048
     Dates: start: 201602, end: 201609
  2. ACETAMINOPHEN. [Concomitant]
     Active Substance: ACETAMINOPHEN
  3. HYOSCYAMINE SULFATE. [Concomitant]
     Active Substance: HYOSCYAMINE SULFATE
  4. XYREM [Suspect]
     Active Substance: SODIUM OXYBATE
     Dosage: 4.5 G, BID
     Route: 048
     Dates: start: 201609
  5. CEFDINIR. [Concomitant]
     Active Substance: CEFDINIR
  6. MODAFINIL. [Concomitant]
     Active Substance: MODAFINIL
  7. PROCTOSOL HC [Concomitant]
  8. ADDERALL [Concomitant]
     Active Substance: AMPHETAMINE ASPARTATE\AMPHETAMINE SULFATE\DEXTROAMPHETAMINE SACCHARATE\DEXTROAMPHETAMINE SULFATE
  9. IBUPROFEN. [Concomitant]
     Active Substance: IBUPROFEN
  10. VYVANSE [Concomitant]
     Active Substance: LISDEXAMFETAMINE DIMESYLATE
  11. XYREM [Suspect]
     Active Substance: SODIUM OXYBATE
     Indication: NARCOLEPSY
     Dosage: 2.5 G, BID
     Route: 048
     Dates: start: 201601, end: 201602
  12. TRI-LINYAH [Concomitant]
     Active Substance: ETHINYL ESTRADIOL\NORGESTIMATE

REACTIONS (1)
  - Pharyngitis streptococcal [Unknown]

NARRATIVE: CASE EVENT DATE: 2016
